FAERS Safety Report 22175803 (Version 1)
Quarter: 2023Q2

REPORT INFORMATION
  Report Type: Spontaneous
  Country: US (occurrence: US)
  Receive Date: 20230405
  Receipt Date: 20230405
  Transmission Date: 20230721
  Serious: No
  Sender: FDA-Public Use
  Company Number: US-HERON THERAPEUTICS, INC-HRTX-2023-000907

PATIENT
  Sex: Male

DRUGS (1)
  1. ZYNRELEF [Suspect]
     Active Substance: BUPIVACAINE\MELOXICAM
     Indication: Postoperative analgesia
     Dosage: 10 MILLILITER, SINGLE
     Route: 065
     Dates: start: 20230111, end: 20230111

REACTIONS (2)
  - Wound dehiscence [Unknown]
  - Suture related complication [Unknown]
